FAERS Safety Report 16470684 (Version 1)
Quarter: 2019Q2

REPORT INFORMATION
  Report Type: Spontaneous
  Country: US (occurrence: US)
  Receive Date: 20190624
  Receipt Date: 20190624
  Transmission Date: 20190711
  Serious: No
  Sender: FDA-Public Use
  Company Number: US-CATALYST PHARMACEUTICALS, INC-2019CAT00115

PATIENT
  Age: 75 Year
  Sex: Female
  Weight: 81.63 kg

DRUGS (1)
  1. FIRDAPSE [Suspect]
     Active Substance: AMIFAMPRIDINE
     Indication: MYASTHENIC SYNDROME
     Dosage: 5 MG, 3X/DAY
     Route: 048
     Dates: start: 20190418, end: 20190423

REACTIONS (7)
  - Flatulence [Recovered/Resolved]
  - Insomnia [Recovered/Resolved]
  - Nasopharyngitis [Recovered/Resolved]
  - Taste disorder [Recovered/Resolved]
  - Diarrhoea [Recovered/Resolved]
  - Restless legs syndrome [Recovered/Resolved]
  - Panic attack [Recovered/Resolved]

NARRATIVE: CASE EVENT DATE: 201904
